FAERS Safety Report 25124522 (Version 1)
Quarter: 2025Q1

REPORT INFORMATION
  Report Type: Spontaneous
  Country: AT (occurrence: AT)
  Receive Date: 20250326
  Receipt Date: 20250326
  Transmission Date: 20250408
  Serious: Yes (Other)
  Sender: NOVARTIS
  Company Number: AT-002147023-PHHY2014AT170808

PATIENT
  Sex: Female

DRUGS (1)
  1. GILENYA [Suspect]
     Active Substance: FINGOLIMOD HYDROCHLORIDE
     Indication: Multiple sclerosis
     Route: 065

REACTIONS (5)
  - Respiratory tract infection [Not Recovered/Not Resolved]
  - Lymphopenia [Not Recovered/Not Resolved]
  - Genitourinary tract infection [Not Recovered/Not Resolved]
  - Blood disorder [Recovered/Resolved]
  - Lymphatic disorder [Recovered/Resolved]

NARRATIVE: CASE EVENT DATE: 20121001
